FAERS Safety Report 9637115 (Version 15)
Quarter: 2014Q2

REPORT INFORMATION
  Report Type: Report from Study
  Country: CA (occurrence: CA)
  Receive Date: 20131022
  Receipt Date: 20140514
  Transmission Date: 20141212
  Serious: Yes (Other)
  Sender: FDA-Public Use
  Company Number: CA-ROCHE-1245543

PATIENT
  Age: 67 Year
  Sex: Female
  Weight: 56 kg

DRUGS (10)
  1. AVASTIN [Suspect]
     Indication: OVARIAN CANCER
     Route: 042
     Dates: start: 20130617
  2. AVASTIN [Suspect]
     Route: 042
     Dates: start: 20130705, end: 20140411
  3. LETROZOLE [Suspect]
     Indication: PRODUCT USED FOR UNKNOWN INDICATION
     Route: 065
     Dates: end: 201310
  4. AMOXICILLIN [Suspect]
     Indication: PRODUCT USED FOR UNKNOWN INDICATION
     Dosage: 5 DAY COURSE
     Route: 065
     Dates: end: 20140321
  5. MACROBID (CANADA) [Suspect]
     Indication: URINARY TRACT INFECTION
     Route: 065
     Dates: start: 20140408
  6. VITAMIN B12 [Concomitant]
     Route: 065
     Dates: end: 20130626
  7. IBUPROFEN [Concomitant]
     Indication: ARTHRALGIA
     Route: 065
  8. GREEN TEA EXTRACT [Concomitant]
     Route: 065
  9. MELATONIN [Concomitant]
     Route: 065
  10. AVELOX [Concomitant]

REACTIONS (24)
  - Road traffic accident [Unknown]
  - Carbohydrate antigen 125 increased [Not Recovered/Not Resolved]
  - Lung infection [Recovered/Resolved]
  - Drug ineffective [Unknown]
  - Thermal burn [Recovered/Resolved]
  - Tumour marker increased [Not Recovered/Not Resolved]
  - Platelet count decreased [Not Recovered/Not Resolved]
  - Nasopharyngitis [Recovering/Resolving]
  - Hypersensitivity [Recovering/Resolving]
  - Drug ineffective [Unknown]
  - Off label use [Unknown]
  - Headache [Not Recovered/Not Resolved]
  - Herpes zoster [Not Recovered/Not Resolved]
  - Miliaria [Unknown]
  - Urine ketone body present [Unknown]
  - White blood cells urine positive [Unknown]
  - Urinary tract infection [Not Recovered/Not Resolved]
  - Abdominal pain lower [Not Recovered/Not Resolved]
  - Diarrhoea [Not Recovered/Not Resolved]
  - Abdominal discomfort [Not Recovered/Not Resolved]
  - Weight decreased [Unknown]
  - Micturition urgency [Unknown]
  - Abdominal discomfort [Unknown]
  - Disease progression [Unknown]
